FAERS Safety Report 12934980 (Version 2)
Quarter: 2020Q1

REPORT INFORMATION
  Report Type: Spontaneous
  Country: US (occurrence: US)
  Receive Date: 20161113
  Receipt Date: 20200330
  Transmission Date: 20200409
  Serious: Yes (Death, Hospitalization, Other)
  Sender: FDA-Public Use
  Company Number: US-009507513-1611USA005616

PATIENT
  Sex: Female
  Weight: 65.76 kg

DRUGS (4)
  1. JANUVIA [Suspect]
     Active Substance: SITAGLIPTIN PHOSPHATE
     Dosage: 100 MG, ONCE DAILY
     Route: 048
     Dates: start: 20070314, end: 201307
  2. BYETTA [Suspect]
     Active Substance: EXENATIDE
     Dosage: 5 MCG PEN, INJECT TWICE DAILY
     Dates: start: 20060403, end: 200605
  3. JANUMET [Suspect]
     Active Substance: METFORMIN HYDROCHLORIDE\SITAGLIPTIN PHOSPHATE
     Dosage: TAKE 1 TWICE DAILY
     Route: 048
     Dates: start: 20080320, end: 200904
  4. BYETTA [Suspect]
     Active Substance: EXENATIDE
     Dosage: 10 MCG PEN, INJECT TWICE DAILY
     Route: 065
     Dates: start: 20060301

REACTIONS (27)
  - Pulmonary embolism [Unknown]
  - Emotional distress [Unknown]
  - Mental disorder [Unknown]
  - Pancreatitis [Not Recovered/Not Resolved]
  - Adverse event [Unknown]
  - Abdominal pain upper [Not Recovered/Not Resolved]
  - Pain in extremity [Unknown]
  - Abdominal pain [Recovering/Resolving]
  - Pancreatic carcinoma [Fatal]
  - Metastases to liver [Unknown]
  - Vomiting [Not Recovered/Not Resolved]
  - Urinary tract infection [Unknown]
  - Back pain [Not Recovered/Not Resolved]
  - Flatulence [Not Recovered/Not Resolved]
  - Pain [Not Recovered/Not Resolved]
  - Pancreatic carcinoma metastatic [Unknown]
  - Liver abscess [Unknown]
  - Gastrointestinal disorder [Not Recovered/Not Resolved]
  - Leukocytosis [Unknown]
  - Deep vein thrombosis [Unknown]
  - Nausea [Not Recovered/Not Resolved]
  - Stent placement [Unknown]
  - Pyrexia [Unknown]
  - Bile duct cancer [Unknown]
  - Cholangitis [Unknown]
  - Peripheral swelling [Unknown]
  - Constipation [Not Recovered/Not Resolved]

NARRATIVE: CASE EVENT DATE: 2013
